FAERS Safety Report 15153351 (Version 1)
Quarter: 2018Q3

REPORT INFORMATION
  Report Type: Spontaneous
  Country: DE (occurrence: DE)
  Receive Date: 20180717
  Receipt Date: 20180717
  Transmission Date: 20181010
  Serious: Yes (Other)
  Sender: FDA-Public Use
  Company Number: DE-WEST-WARD PHARMACEUTICALS CORP.-DE-H14001-18-05707

PATIENT
  Age: 85 Year
  Sex: Female

DRUGS (43)
  1. CYCLOPHOSPHAMIDE. [Suspect]
     Active Substance: CYCLOPHOSPHAMIDE
     Dosage: 690 MG, UNK
     Route: 041
     Dates: start: 20180403, end: 20180403
  2. CYCLOPHOSPHAMIDE. [Suspect]
     Active Substance: CYCLOPHOSPHAMIDE
     Dosage: 690 MG, UNK
     Route: 041
     Dates: start: 20180424, end: 20180424
  3. PREDNISONE. [Suspect]
     Active Substance: PREDNISONE
     Dosage: 420 MG, UNK
     Route: 048
     Dates: start: 20180403, end: 20180409
  4. DOXORUBICIN [Suspect]
     Active Substance: DOXORUBICIN
     Indication: DIFFUSE LARGE B-CELL LYMPHOMA
     Dosage: 45 MG, UNK
     Route: 041
     Dates: start: 20180220, end: 20180220
  5. DOXORUBICIN [Suspect]
     Active Substance: DOXORUBICIN
     Dosage: 45 MG, UNK
     Route: 041
     Dates: start: 20180522, end: 20180522
  6. DOXORUBICIN [Suspect]
     Active Substance: DOXORUBICIN
     Dosage: 45 MG, UNK
     Route: 041
     Dates: start: 20180612, end: 20180612
  7. CYCLOPHOSPHAMIDE. [Suspect]
     Active Substance: CYCLOPHOSPHAMIDE
     Dosage: 690 MG, UNK
     Route: 041
     Dates: start: 20180312, end: 20180312
  8. RIXIMYO [Suspect]
     Active Substance: RITUXIMAB
     Dosage: 645 MG, UNK
     Route: 041
     Dates: start: 20180219, end: 20180219
  9. PREDNISONE. [Suspect]
     Active Substance: PREDNISONE
     Dosage: 420 MG, UNK
     Route: 048
     Dates: start: 20180312, end: 20180318
  10. PREDNISONE. [Suspect]
     Active Substance: PREDNISONE
     Dosage: 120 MG, UNK
     Route: 048
     Dates: start: 20180219, end: 20180225
  11. VINCRISTINE [Suspect]
     Active Substance: VINCRISTINE
     Indication: DIFFUSE LARGE B-CELL LYMPHOMA
     Dosage: 0.5 MG, UNK
     Route: 041
     Dates: start: 20180220, end: 20180220
  12. ONDANSETRON [Concomitant]
     Active Substance: ONDANSETRON
     Indication: PROPHYLAXIS
     Dosage: UNK ()
     Route: 042
  13. LEVOTHYROXIN [Concomitant]
     Active Substance: LEVOTHYROXINE
     Indication: PRODUCT USED FOR UNKNOWN INDICATION
     Dosage: UNK ()
     Route: 048
  14. VINCRISTINE [Suspect]
     Active Substance: VINCRISTINE
     Dosage: 1 MG, UNK
     Route: 041
     Dates: start: 20180424, end: 20180424
  15. VALSARTAN. [Concomitant]
     Active Substance: VALSARTAN
     Indication: HYPERTENSION
     Dosage: ()
     Route: 048
  16. SOLU DECORTIN [Concomitant]
     Active Substance: PREDNISOLONE SODIUM SUCCINATE
     Indication: PRODUCT USED FOR UNKNOWN INDICATION
     Dosage: UNK ()
     Route: 042
     Dates: start: 20180219, end: 20180219
  17. METFORMIN [Concomitant]
     Active Substance: METFORMIN HYDROCHLORIDE
     Indication: TYPE 2 DIABETES MELLITUS
     Dosage: ()
     Route: 048
  18. RIXIMYO [Suspect]
     Active Substance: RITUXIMAB
     Dosage: 645 MG, UNK
     Route: 041
     Dates: start: 20180403, end: 20180403
  19. PREDNISONE. [Suspect]
     Active Substance: PREDNISONE
     Dosage: 420 MG, UNK
     Route: 048
     Dates: start: 20180522, end: 20180528
  20. VINCRISTINE [Suspect]
     Active Substance: VINCRISTINE
     Dosage: 1 MG, UNK
     Route: 041
     Dates: start: 20180403, end: 20180403
  21. DOXORUBICIN [Suspect]
     Active Substance: DOXORUBICIN
     Dosage: 45 MG, UNK
     Route: 041
     Dates: start: 20180424, end: 20180424
  22. RIXIMYO [Suspect]
     Active Substance: RITUXIMAB
     Dosage: 645 MG, UNK
     Route: 041
  23. RIXIMYO [Suspect]
     Active Substance: RITUXIMAB
     Dosage: UNK ()
     Route: 041
     Dates: start: 20180424, end: 20180424
  24. RIXIMYO [Suspect]
     Active Substance: RITUXIMAB
     Dosage: 645 MG, UNK
     Route: 041
     Dates: start: 20180312, end: 20180312
  25. PREDNISONE. [Suspect]
     Active Substance: PREDNISONE
     Dosage: 420 MG, UNK
     Route: 048
     Dates: start: 20180612, end: 20180618
  26. VINCRISTINE [Suspect]
     Active Substance: VINCRISTINE
     Dosage: 1 MG, UNK
     Route: 041
     Dates: start: 20180312, end: 20180312
  27. APIXABAN [Concomitant]
     Active Substance: APIXABAN
     Indication: ATRIAL FIBRILLATION
     Dosage: ()
     Route: 048
  28. OMEPRAZOLE. [Concomitant]
     Active Substance: OMEPRAZOLE
     Indication: PROPHYLAXIS
     Dosage: UNK ()
     Route: 048
  29. CYCLOPHOSPHAMIDE. [Suspect]
     Active Substance: CYCLOPHOSPHAMIDE
     Indication: DIFFUSE LARGE B-CELL LYMPHOMA
     Dosage: 690 MG, UNK
     Route: 041
     Dates: start: 20180612, end: 20180612
  30. CYCLOPHOSPHAMIDE. [Suspect]
     Active Substance: CYCLOPHOSPHAMIDE
     Dosage: 690 MG, UNK
     Route: 041
     Dates: start: 20180522, end: 20180522
  31. RIXIMYO [Suspect]
     Active Substance: RITUXIMAB
     Indication: DIFFUSE LARGE B-CELL LYMPHOMA
     Dosage: 645 MG, UNK
     Route: 041
     Dates: start: 20180522, end: 20180522
  32. COTRIM FORTE [Concomitant]
     Active Substance: SULFAMETHOXAZOLE\TRIMETHOPRIM
     Indication: PROPHYLAXIS
     Dosage: UNK ()
     Route: 048
  33. ALLOPURINOL. [Concomitant]
     Active Substance: ALLOPURINOL
     Indication: PROPHYLAXIS
     Dosage: UNK ()
     Route: 048
     Dates: start: 20180213, end: 20180226
  34. CYCLOPHOSPHAMIDE. [Suspect]
     Active Substance: CYCLOPHOSPHAMIDE
     Dosage: 690 MG, UNK
     Route: 041
     Dates: start: 20180220, end: 20180220
  35. TAVEGIL [Concomitant]
     Active Substance: CLEMASTINE FUMARATE
     Indication: PROPHYLAXIS
     Dosage: UNK ()
     Route: 042
  36. SALVYSAT [Concomitant]
     Active Substance: SAGE
     Indication: PROPHYLAXIS
     Dosage: UNK ()
     Route: 048
  37. BISOPROLOL [Concomitant]
     Active Substance: BISOPROLOL
     Indication: HYPERTENSION
     Dosage: ()
     Route: 048
  38. PARACETAMOL [Concomitant]
     Active Substance: ACETAMINOPHEN
     Indication: PROPHYLAXIS
     Dosage: UNK ()
     Route: 048
  39. DOXORUBICIN [Suspect]
     Active Substance: DOXORUBICIN
     Dosage: 45 MG, UNK
     Route: 041
     Dates: start: 20180312, end: 20180312
  40. DOXORUBICIN [Suspect]
     Active Substance: DOXORUBICIN
     Dosage: 45 MG, UNK
     Route: 041
     Dates: start: 20180403, end: 20180403
  41. PREDNISONE. [Suspect]
     Active Substance: PREDNISONE
     Indication: DIFFUSE LARGE B-CELL LYMPHOMA
     Dosage: 420 MG, UNK
     Route: 048
     Dates: start: 20180424, end: 20180430
  42. VINCRISTINE [Suspect]
     Active Substance: VINCRISTINE
     Dosage: 1 MG, UNK
     Route: 041
     Dates: start: 20180220, end: 20180220
  43. TORASEMID [Concomitant]
     Active Substance: TORSEMIDE
     Indication: HYPERTENSION
     Dosage: ()
     Route: 048

REACTIONS (1)
  - Neuropathy peripheral [Not Recovered/Not Resolved]

NARRATIVE: CASE EVENT DATE: 20180508
